FAERS Safety Report 8115290-1 (Version None)
Quarter: 2012Q1

REPORT INFORMATION
  Report Type: 
  Country: None (occurrence: None)
  Receive Date: 20120206
  Receipt Date: 20120130
  Transmission Date: 20120608
  Serious: Yes (Other)
  Sender: FDA-Public Use
  Company Number: JP-JNJFOC-20120201637

PATIENT
  Sex: Female

DRUGS (28)
  1. FENTANYL-100 [Suspect]
     Dosage: 25 UG/HR PER 2 DAY
     Route: 062
     Dates: start: 20100715, end: 20100717
  2. CELECOXIB [Concomitant]
     Indication: PAIN
     Route: 048
     Dates: start: 20100615
  3. MEIACT [Concomitant]
     Route: 048
     Dates: start: 20110603, end: 20110606
  4. LYRICA [Concomitant]
     Indication: PAIN
     Route: 048
     Dates: start: 20101220, end: 20101227
  5. UNKNOWN MEDICATION [Concomitant]
     Route: 048
     Dates: start: 20100718, end: 20110112
  6. EBRANTIL [Concomitant]
     Route: 048
     Dates: start: 20110607, end: 20110719
  7. MAGNESIUM OXIDE [Concomitant]
     Route: 048
     Dates: start: 20100617, end: 20100901
  8. MAGNESIUM OXIDE [Concomitant]
     Route: 048
     Dates: start: 20100528, end: 20100616
  9. ROHYPNOL [Concomitant]
     Route: 048
     Dates: start: 20100615
  10. ZOLOFT [Concomitant]
     Route: 048
     Dates: start: 20100615
  11. METHYCOBAL [Concomitant]
     Indication: PAIN
     Route: 048
     Dates: start: 20100615
  12. LEVOTHYROXINE SODIUM [Concomitant]
     Route: 048
     Dates: start: 20100615
  13. LYRICA [Concomitant]
     Route: 048
     Dates: start: 20101228
  14. UNKNOWN MEDICATION [Concomitant]
     Dosage: 60-100 MG
     Route: 048
     Dates: start: 20110113
  15. NEUROTROPIN [Concomitant]
     Indication: PAIN
     Dosage: 16 IU X 1 PER 1 DAY
     Route: 048
  16. AN UNKNOWN MEDICATION [Concomitant]
     Route: 048
     Dates: start: 20091001
  17. MAGNESIUM OXIDE [Concomitant]
     Route: 048
     Dates: start: 20100902
  18. JUVELAN [Concomitant]
     Route: 048
     Dates: start: 20100615
  19. UNKNOWN MEDICATION [Concomitant]
     Indication: PAIN
     Route: 048
     Dates: start: 20100715, end: 20100717
  20. ALPRAZOLAM [Concomitant]
     Route: 048
     Dates: start: 20100615, end: 20111019
  21. FENOFIBRATE [Concomitant]
     Route: 048
     Dates: start: 20100615
  22. ACTONEL [Concomitant]
     Route: 048
     Dates: start: 20100615
  23. FENTANYL-100 [Suspect]
     Indication: PAIN
     Dosage: 12.5 UG/HR PER 3 DAY
     Route: 062
     Dates: start: 20100720
  24. FENTANYL-100 [Suspect]
     Dosage: 12.5 MCG/HR PER 3 DAY
     Route: 062
     Dates: start: 20101015
  25. LEVOTOMIN [Concomitant]
     Route: 048
     Dates: start: 20100615
  26. NEUROTROPIN [Concomitant]
     Route: 048
     Dates: start: 20090903
  27. FAMOTIDINE [Concomitant]
     Indication: PROPHYLAXIS
     Route: 048
     Dates: start: 20100615
  28. LYRICA [Concomitant]
     Route: 048
     Dates: start: 20101125, end: 20101219

REACTIONS (2)
  - CYSTITIS [None]
  - DIZZINESS [None]
